FAERS Safety Report 10349145 (Version 3)
Quarter: 2014Q4

REPORT INFORMATION
  Report Type: Spontaneous
  Country: CH (occurrence: CH)
  Receive Date: 20140730
  Receipt Date: 20141027
  Transmission Date: 20150528
  Serious: Yes (Other)
  Sender: FDA-Public Use
  Company Number: CH-ABBVIE-14P-151-1261659-00

PATIENT
  Age: 31 Year
  Sex: Female

DRUGS (4)
  1. HUMIRA [Suspect]
     Active Substance: ADALIMUMAB
     Route: 058
     Dates: start: 20140326, end: 20140528
  2. ARCOXIA [Concomitant]
     Active Substance: ETORICOXIB
     Indication: PRODUCT USED FOR UNKNOWN INDICATION
     Route: 048
  3. IBUPROFEN. [Concomitant]
     Active Substance: IBUPROFEN
     Indication: PAIN
     Route: 048
  4. HUMIRA [Suspect]
     Active Substance: ADALIMUMAB
     Indication: SERONEGATIVE ARTHRITIS
     Route: 058
     Dates: start: 201305, end: 201312

REACTIONS (12)
  - Pain [Recovering/Resolving]
  - Photophobia [Unknown]
  - Spondylitis [Unknown]
  - Pulmonary sarcoidosis [Recovering/Resolving]
  - Alveolitis [Unknown]
  - Uveitis [Recovered/Resolved]
  - Pulmonary granuloma [Recovering/Resolving]
  - Orthostatic hypotension [Recovered/Resolved]
  - Painful respiration [Unknown]
  - Exercise tolerance decreased [Unknown]
  - Spinal pain [Recovered/Resolved]
  - Eye pain [Unknown]

NARRATIVE: CASE EVENT DATE: 201404
